FAERS Safety Report 23117722 (Version 6)
Quarter: 2023Q4

REPORT INFORMATION
  Report Type: Report from Study
  Country: CN (occurrence: CN)
  Receive Date: 20231027
  Receipt Date: 20231218
  Transmission Date: 20240109
  Serious: Yes (Death, Life-Threatening, Other)
  Sender: FDA-Public Use
  Company Number: CN-TAKEDA-2023TUS079452

PATIENT
  Age: 32 Year
  Sex: Male
  Weight: 75 kg

DRUGS (6)
  1. BRENTUXIMAB VEDOTIN [Suspect]
     Active Substance: BRENTUXIMAB VEDOTIN
     Indication: Cutaneous T-cell lymphoma
     Dosage: 100 MILLIGRAM, Q3WEEKS
     Route: 041
     Dates: start: 20230809
  2. BICYCLOL [Concomitant]
     Active Substance: BICYCLOL
     Indication: Drug-induced liver injury
     Dosage: 50 MILLIGRAM, TID
     Route: 048
     Dates: start: 20230809, end: 20230814
  3. PHOSPHOLIPID [Concomitant]
     Active Substance: PHOSPHOLIPID
     Indication: Prophylaxis
     Dosage: 10 MILLILITER, QD
     Route: 042
     Dates: start: 20230809, end: 20230814
  4. POTASSIUM CHLORIDE [Concomitant]
     Active Substance: POTASSIUM CHLORIDE
     Indication: Electrolyte imbalance
     Dosage: 20 MILLILITER, QD
     Route: 042
     Dates: start: 20230809, end: 20230810
  5. DEXAMETHASONE SODIUM PHOSPHATE [Concomitant]
     Active Substance: DEXAMETHASONE PHOSPHATE\DEXAMETHASONE SODIUM PHOSPHATE
     Indication: Allergy prophylaxis
     Dosage: 5 MILLIGRAM, QD
     Route: 042
     Dates: start: 20230809, end: 20230809
  6. DIPHENHYDRAMINE HYDROCHLORIDE [Concomitant]
     Active Substance: DIPHENHYDRAMINE HYDROCHLORIDE
     Indication: Allergy prophylaxis
     Dosage: 20 MILLIGRAM, QD
     Route: 030
     Dates: start: 20230809, end: 20230809

REACTIONS (5)
  - Cutaneous T-cell lymphoma [Fatal]
  - Platelet count decreased [Unknown]
  - Myelosuppression [Unknown]
  - Swelling of eyelid [Not Recovered/Not Resolved]
  - Off label use [Recovered/Resolved]

NARRATIVE: CASE EVENT DATE: 20230809
